FAERS Safety Report 10410802 (Version 1)
Quarter: 2014Q3

REPORT INFORMATION
  Report Type: Spontaneous
  Country: US (occurrence: US)
  Receive Date: 20140826
  Receipt Date: 20140826
  Transmission Date: 20150326
  Serious: Yes (Other)
  Sender: FDA-Public Use
  Company Number: US-BRISTOL-MYERS SQUIBB COMPANY-19128537

PATIENT
  Age: 57 Year
  Sex: Female
  Weight: 51.7 kg

DRUGS (3)
  1. DEPO-MEDROL [Concomitant]
     Active Substance: METHYLPREDNISOLONE ACETATE
     Dosage: STEROID INJECTION IN FEBRUARY 2012
  2. KENALOG [Suspect]
     Active Substance: TRIAMCINOLONE ACETONIDE
     Indication: BACK PAIN
     Dosage: SPINAL/LUMBAR INJECTION
  3. KENALOG [Suspect]
     Active Substance: TRIAMCINOLONE ACETONIDE
     Indication: INTERVERTEBRAL DISC PROTRUSION
     Dosage: SPINAL/LUMBAR INJECTION

REACTIONS (1)
  - Neuropathy peripheral [Unknown]
